FAERS Safety Report 10598474 (Version 1)
Quarter: 2014Q4

REPORT INFORMATION
  Report Type: Spontaneous
  Country: US (occurrence: None)
  Receive Date: 20141119
  Receipt Date: 20141119
  Transmission Date: 20150529
  Serious: No
  Sender: FDA-Public Use
  Company Number: 1000071304

PATIENT
  Age: 31 Year
  Sex: Female

DRUGS (11)
  1. XOPENEX (LEVOSALBUTAMOL HYDROCHLORIDE) (LEVOSALBUTAMOL HYDROCHLORIDE)? [Concomitant]
  2. MAXZIDE (DYAZIDE) (DYAZIDE) [Concomitant]
  3. ATROVENT (IPRATROPIUM BROMIDE) (IPRATROPIUM BROMIDE) [Concomitant]
  4. ASMANEX (MOMETASONE FUROATE) (MEMETASONE FUROATE)? [Concomitant]
  5. ALVESCO (CICLESONIDE) (CICLESONIDE) [Concomitant]
  6. DYMISTA (DUONASE) (DUONASE) [Concomitant]
  7. COZAAR (LOSARTAN POTASSIUM) (LOSARTAN POSTASIUM) [Concomitant]
  8. ZOLOFT (SERTRALINE HYDROCHLORIDE) (SERTRALINE HYDROCHLORIDE) [Concomitant]
  9. SINGULAIR (MOTELUKAST SODIUM) (MONTELUKAST SODIUM) [Concomitant]
  10. PRAVASTATIN (PRAVASTATIN) (PRAVASTATIN) [Concomitant]
  11. TUDORZA PRESSAIR [Suspect]
     Active Substance: ACLIDINIUM BROMIDE
     Indication: ASTHMA
     Dosage: 800MCG (400 MCG, 2 IN 1 D), RESPIRATORY (INHALATION)?
     Route: 055
     Dates: start: 201409

REACTIONS (6)
  - Fatigue [None]
  - Cough [None]
  - Off label use [None]
  - Musculoskeletal chest pain [None]
  - Sinusitis [None]
  - Dysphonia [None]

NARRATIVE: CASE EVENT DATE: 201409
